FAERS Safety Report 12861971 (Version 4)
Quarter: 2016Q4

REPORT INFORMATION
  Report Type: Report from Study
  Country: BR (occurrence: BR)
  Receive Date: 20161019
  Receipt Date: 20161128
  Transmission Date: 20170207
  Serious: Yes (Other)
  Sender: FDA-Public Use
  Company Number: PHHY2016BR142613

PATIENT
  Sex: Male
  Weight: 52 kg

DRUGS (1)
  1. RITALIN LA [Suspect]
     Active Substance: METHYLPHENIDATE HYDROCHLORIDE
     Indication: ATTENTION DEFICIT/HYPERACTIVITY DISORDER
     Dosage: 1 DF, QD (MONDAY TO FRIDAY DURING THE SCHOOL YEAR)
     Route: 048

REACTIONS (6)
  - Drug dependence [Unknown]
  - Paralysis [Not Recovered/Not Resolved]
  - Eating disorder [Unknown]
  - Learning disorder [Not Recovered/Not Resolved]
  - Decreased appetite [Not Recovered/Not Resolved]
  - Abnormal behaviour [Not Recovered/Not Resolved]
